FAERS Safety Report 6287773-0 (Version None)
Quarter: 2009Q3

REPORT INFORMATION
  Report Type: 
  Country: None (occurrence: None)
  Receive Date: 20090720
  Receipt Date: 20081212
  Transmission Date: 20100115
  Serious: Yes (Other)
  Sender: FDA-Public Use
  Company Number: A-US2008-21407

PATIENT
  Age: 63 Year
  Sex: Male
  Weight: 91.4 kg

DRUGS (14)
  1. TRACLEER [Suspect]
     Indication: PULMONARY HYPERTENSION
     Dosage: 62.5 MG, BID ; 125 MG, BID, ORAL
     Route: 048
     Dates: start: 20080601, end: 20080722
  2. TRACLEER [Suspect]
     Indication: PULMONARY HYPERTENSION
     Dosage: 62.5 MG, BID ; 125 MG, BID, ORAL
     Route: 048
     Dates: start: 20080501
  3. AZATHIOPRINE [Concomitant]
  4. LIPITOR [Concomitant]
  5. ASCORBIC ACID [Concomitant]
  6. VITAMIN D [Concomitant]
  7. MULTIVITAMIN [Concomitant]
  8. CALCIUM (CALCIUM LACTATE GLUCONATE, ASCORBIC ACID) [Concomitant]
  9. N-ACETYLCYSTINE (ACETYLCYSTEINE) [Concomitant]
  10. NEURONTIN [Concomitant]
  11. AVAPRO [Concomitant]
  12. NOVOLIN (INSULIN) [Concomitant]
  13. NOVOLOG [Concomitant]
  14. PREDNISOLONE (PREDNISONE) [Concomitant]

REACTIONS (9)
  - ALANINE AMINOTRANSFERASE INCREASED [None]
  - ASPARTATE AMINOTRANSFERASE INCREASED [None]
  - EYE SWELLING [None]
  - FLUSHING [None]
  - HYPERSENSITIVITY [None]
  - HYPOTENSION [None]
  - LIVER FUNCTION TEST ABNORMAL [None]
  - PRURITUS [None]
  - RASH [None]
